FAERS Safety Report 5283217-6 (Version None)
Quarter: 2007Q2

REPORT INFORMATION
  Report Type: 
  Country: None (occurrence: None)
  Receive Date: 20070402
  Receipt Date: 20070329
  Transmission Date: 20071010
  Serious: Yes (Other)
  Sender: FDA-Public Use
  Company Number: JP-JPN-A200701148

PATIENT
  Age: 7 Year
  Sex: Female

DRUGS (4)
  1. RELENZA [Suspect]
     Indication: INFLUENZA
     Dosage: 10MG TWICE PER DAY
     Route: 055
     Dates: start: 20070313, end: 20070314
  2. CALONAL [Concomitant]
     Route: 065
  3. MUCODYNE [Concomitant]
     Route: 048
  4. CEFZON [Concomitant]
     Route: 048

REACTIONS (3)
  - CONVULSION [None]
  - FALL [None]
  - SLEEP TERROR [None]
